FAERS Safety Report 16930098 (Version 1)
Quarter: 2019Q4

REPORT INFORMATION
  Report Type: Spontaneous
  Country: GB (occurrence: GB)
  Receive Date: 20191017
  Receipt Date: 20191017
  Transmission Date: 20200122
  Serious: Yes (Hospitalization, Other)
  Sender: FDA-Public Use
  Company Number: GB-ASTRAZENECA-2019SF44732

PATIENT
  Age: 59 Year
  Sex: Male
  Weight: 84 kg

DRUGS (7)
  1. METFORMIN [Concomitant]
     Active Substance: METFORMIN HYDROCHLORIDE
  2. LATANOPROST. [Concomitant]
     Active Substance: LATANOPROST
  3. SERTRALINE [Concomitant]
     Active Substance: SERTRALINE HYDROCHLORIDE
  4. METRONIDAZOLE. [Concomitant]
     Active Substance: METRONIDAZOLE
  5. SIMVASTATIN. [Concomitant]
     Active Substance: SIMVASTATIN
  6. DAPAGLIFLOZIN. [Suspect]
     Active Substance: DAPAGLIFLOZIN
     Route: 048
     Dates: start: 20190611, end: 20190819
  7. GLICLAZIDE [Concomitant]
     Active Substance: GLICLAZIDE

REACTIONS (6)
  - Euglycaemic diabetic ketoacidosis [Recovered/Resolved]
  - Diarrhoea [Recovered/Resolved]
  - Vomiting [Recovered/Resolved]
  - Decreased appetite [Recovered/Resolved]
  - Dizziness [Recovered/Resolved]
  - Nausea [Recovered/Resolved]

NARRATIVE: CASE EVENT DATE: 20190805
